FAERS Safety Report 20173705 (Version 6)
Quarter: 2022Q2

REPORT INFORMATION
  Report Type: Spontaneous
  Country: CA (occurrence: CA)
  Receive Date: 20211212
  Receipt Date: 20220614
  Transmission Date: 20220721
  Serious: Yes (Hospitalization, Other)
  Sender: FDA-Public Use
  Company Number: CA-CELLTRION INC.-2021CA017011

PATIENT

DRUGS (5)
  1. INFLECTRA [Suspect]
     Active Substance: INFLIXIMAB-DYYB
     Indication: Crohn^s disease
     Dosage: 5MG/KG, 0, 2, 6, THEN EVERY 8 WEEKS.WEEK 0 DOSE AT HOSPITAL
     Route: 042
     Dates: start: 20211105
  2. INFLECTRA [Suspect]
     Active Substance: INFLIXIMAB-DYYB
     Dosage: 5MG/KG, 0, 2, 6, THEN EVERY 8 WEEKS.WEEK 0 DOSE AT HOSPITAL
     Route: 042
     Dates: start: 20220408
  3. CODEINE [Concomitant]
     Active Substance: CODEINE
     Dosage: UNK
  4. CODEINE [Concomitant]
     Active Substance: CODEINE
     Dosage: UNK
  5. PREDNISONE [Concomitant]
     Active Substance: PREDNISONE
     Dosage: UNK

REACTIONS (10)
  - Colon cancer stage III [Not Recovered/Not Resolved]
  - Condition aggravated [Unknown]
  - Decreased appetite [Unknown]
  - Skin disorder [Unknown]
  - Weight decreased [Unknown]
  - Diarrhoea [Not Recovered/Not Resolved]
  - Gastrointestinal disorder [Unknown]
  - Weight increased [Unknown]
  - Off label use [Unknown]
  - Intentional product use issue [Unknown]

NARRATIVE: CASE EVENT DATE: 20210101
